FAERS Safety Report 7553451-0 (Version None)
Quarter: 2011Q2

REPORT INFORMATION
  Report Type: 
  Country: None (occurrence: None)
  Receive Date: 20110617
  Receipt Date: 20110118
  Transmission Date: 20111010
  Serious: Yes (Other)
  Sender: FDA-Public Use
  Company Number: US-BAYER-201030302NA

PATIENT
  Age: 34 Year
  Sex: Female
  Weight: 86.168 kg

DRUGS (8)
  1. YASMIN [Suspect]
     Indication: PRODUCT USED FOR UNKNOWN INDICATION
     Dosage: START: EARLY 2005
     Route: 048
     Dates: start: 20050314, end: 20060101
  2. YAZ [Suspect]
     Dosage: UNK
     Dates: start: 20070313
  3. FLOVENT [Concomitant]
  4. HYDROXYCHLOROQUINE SULFATE [Concomitant]
  5. NAPROXEN [Concomitant]
  6. SYNTHROID [Concomitant]
  7. YAZ [Suspect]
     Indication: PRODUCT USED FOR UNKNOWN INDICATION
     Dosage: START: EARLY 2005
     Route: 048
     Dates: start: 20050101
  8. ACCOLATE [Concomitant]

REACTIONS (4)
  - PAIN [None]
  - CHOLELITHIASIS [None]
  - GALLBLADDER INJURY [None]
  - CHOLECYSTITIS CHRONIC [None]
